FAERS Safety Report 7031727-3 (Version None)
Quarter: 2010Q4

REPORT INFORMATION
  Report Type: 
  Country: None (occurrence: None)
  Receive Date: 20101007
  Receipt Date: 20100927
  Transmission Date: 20110411
  Serious: Yes (Hospitalization)
  Sender: FDA-Public Use
  Company Number: US-BIOGENIDEC-2010BI033843

PATIENT
  Age: 74 Year
  Sex: Male

DRUGS (1)
  1. AVONEX [Suspect]
     Indication: MULTIPLE SCLEROSIS
     Route: 030
     Dates: start: 20001018

REACTIONS (5)
  - CELLULITIS [None]
  - THERMAL BURN [None]
  - THROMBOSIS [None]
  - URINARY TRACT INFECTION [None]
  - VASCULAR RUPTURE [None]
